FAERS Safety Report 4859992-9 (Version None)
Quarter: 2005Q4

REPORT INFORMATION
  Report Type: 
  Country: None (occurrence: None)
  Receive Date: 20051219
  Receipt Date: 20050722
  Transmission Date: 20060501
  Serious: Yes (Hospitalization, Other)
  Sender: FDA-Public Use
  Company Number: US-MERCK-0507USA03754

PATIENT
  Age: 58 Year
  Sex: Female
  Weight: 101 kg

DRUGS (9)
  1. VIOXX [Suspect]
     Indication: ARTHRITIS
     Route: 048
     Dates: start: 20031101, end: 20031101
  2. PROPAFENONE HYDROCHLORIDE [Concomitant]
     Route: 065
  3. AMARYL [Concomitant]
     Route: 065
  4. PAROXETINE [Concomitant]
     Route: 065
  5. LEVSIN [Concomitant]
     Route: 065
  6. FERROUS SULFATE [Concomitant]
     Route: 065
  7. ALBUTEROL [Concomitant]
     Route: 065
  8. AVANDIA [Concomitant]
     Route: 065
  9. POTASSIUM CHLORIDE [Concomitant]
     Route: 065

REACTIONS (4)
  - ATRIAL FIBRILLATION [None]
  - DEPRESSION [None]
  - MYOCARDIAL INFARCTION [None]
  - RENAL FAILURE ACUTE [None]
